FAERS Safety Report 5869042-3 (Version None)
Quarter: 2008Q3

REPORT INFORMATION
  Report Type: 
  Country: None (occurrence: None)
  Receive Date: 20080903
  Receipt Date: 20080902
  Transmission Date: 20090109
  Serious: Yes (Other)
  Sender: FDA-Public Use
  Company Number: B0519756A

PATIENT
  Age: 18 Year
  Sex: Female

DRUGS (2)
  1. CEFAZOLIN [Suspect]
     Indication: SURGERY
     Route: 042
  2. AMOXICILLIN [Concomitant]
     Indication: PREMEDICATION

REACTIONS (4)
  - ANAPHYLACTIC REACTION [None]
  - ANGIOEDEMA [None]
  - HYPERSENSITIVITY [None]
  - URTICARIA [None]
